FAERS Safety Report 6197008-5 (Version None)
Quarter: 2009Q2

REPORT INFORMATION
  Report Type: 
  Country: None (occurrence: None)
  Receive Date: 20090520
  Receipt Date: 20090508
  Transmission Date: 20091009
  Serious: Yes (Other)
  Sender: FDA-Public Use
  Company Number: SG-PFIZER INC-2009211610

PATIENT
  Age: 18 Year

DRUGS (2)
  1. PHENYTOIN AND PHENYTOIN SODIUM [Suspect]
     Dosage: 300 MG, 1X/DAY
     Route: 048
     Dates: start: 20080901, end: 20080905
  2. PHENOBARBITAL TAB [Suspect]
     Dosage: 30 MG, 2X/DAY
     Route: 048
     Dates: start: 20080904, end: 20080906

REACTIONS (1)
  - ACUTE GENERALISED EXANTHEMATOUS PUSTULOSIS [None]
